FAERS Safety Report 14122508 (Version 1)
Quarter: 2017Q4

REPORT INFORMATION
  Report Type: Spontaneous
  Country: US (occurrence: None)
  Receive Date: 20171024
  Receipt Date: 20171024
  Transmission Date: 20180321
  Serious: No
  Sender: FDA-Public Use
  Company Number: None

PATIENT
  Age: 78 Year
  Sex: Male

DRUGS (9)
  1. ALLOPURINOL. [Suspect]
     Active Substance: ALLOPURINOL
     Indication: GOUT
     Route: 048
     Dates: start: 20170925, end: 20170926
  2. VITAMIN B12 [Concomitant]
     Active Substance: CYANOCOBALAMIN
  3. ELIQUIS [Concomitant]
     Active Substance: APIXABAN
  4. ATORVASTATIN [Concomitant]
     Active Substance: ATORVASTATIN
  5. TIMOLOL MAL GEL [Concomitant]
  6. HYDROCHLOROTHIAZ [Concomitant]
  7. LATANOPROST. [Concomitant]
     Active Substance: LATANOPROST
  8. TEMAZEPAM. [Concomitant]
     Active Substance: TEMAZEPAM
  9. CPAP [Concomitant]
     Active Substance: DEVICE

REACTIONS (1)
  - Arthralgia [None]
